FAERS Safety Report 7373345-3 (Version None)
Quarter: 2011Q1

REPORT INFORMATION
  Report Type: 
  Country: None (occurrence: None)
  Receive Date: 20110324
  Receipt Date: 20110321
  Transmission Date: 20110831
  Serious: Yes (Hospitalization)
  Sender: FDA-Public Use
  Company Number: US-AMGEN-USACT2011015483

PATIENT
  Age: 61 Year
  Sex: Female
  Weight: 46.712 kg

DRUGS (2)
  1. PANITUMUMAB [Suspect]
     Indication: COLORECTAL CANCER METASTATIC
     Dosage: 9 MG/KG, Q3WK
     Route: 042
     Dates: start: 20110225
  2. BEVACIZUMAB [Concomitant]
     Dosage: 9 MG/KG, Q3WK
     Route: 042
     Dates: start: 20110225

REACTIONS (8)
  - DECREASED APPETITE [None]
  - ASTHENIA [None]
  - HYPOPHOSPHATAEMIA [None]
  - CONFUSIONAL STATE [None]
  - NAUSEA [None]
  - HYPOCALCAEMIA [None]
  - HYPOKALAEMIA [None]
  - VOMITING [None]
